FAERS Safety Report 9828279 (Version 2)
Quarter: 2014Q1

REPORT INFORMATION
  Report Type: Spontaneous
  Country: ES (occurrence: ES)
  Receive Date: 20140117
  Receipt Date: 20140122
  Transmission Date: 20141002
  Serious: Yes (Hospitalization)
  Sender: FDA-Public Use
  Company Number: ES-GILEAD-2014-0092363

PATIENT
  Age: 86 Year
  Sex: Female

DRUGS (9)
  1. RANOLAZINE [Suspect]
     Indication: ISCHAEMIC CARDIOMYOPATHY
     Dosage: 375 MG, BID
     Route: 048
     Dates: start: 20110926, end: 20120808
  2. METFORMIN [Concomitant]
  3. ATORVASTATIN [Concomitant]
  4. VENLAFAXINE [Concomitant]
  5. BROMAZEPAM [Concomitant]
  6. ENALAPRIL [Concomitant]
  7. OMEPRAZOL                          /00661201/ [Concomitant]
  8. CLOPIDOGREL [Concomitant]
  9. MOLSIDAIN [Concomitant]

REACTIONS (1)
  - Hepatitis [Recovered/Resolved]
